FAERS Safety Report 24621391 (Version 1)
Quarter: 2024Q4

REPORT INFORMATION
  Report Type: Spontaneous
  Country: ES (occurrence: ES)
  Receive Date: 20241114
  Receipt Date: 20241114
  Transmission Date: 20250114
  Serious: Yes (Other)
  Sender: PFIZER
  Company Number: ES-ROCHE-10000120748

PATIENT
  Age: 71 Year
  Sex: Female
  Weight: 44 kg

DRUGS (18)
  1. CARBOPLATIN [Suspect]
     Active Substance: CARBOPLATIN
     Indication: Non-small cell lung cancer metastatic
     Dosage: 395 MG, EVERY 3 WEEKS
     Route: 042
     Dates: start: 20240506
  2. PEMETREXED [Suspect]
     Active Substance: PEMETREXED
     Indication: Non-small cell lung cancer metastatic
     Dosage: 735 MG, EVERY 3 WEEKS
     Route: 042
     Dates: start: 20240506
  3. DIVARASIB [Suspect]
     Active Substance: DIVARASIB
     Indication: Non-small cell lung cancer metastatic
     Dosage: 200 MG, 1X/DAY
     Route: 048
     Dates: start: 20240506
  4. PEMBROLIZUMAB [Suspect]
     Active Substance: PEMBROLIZUMAB
     Indication: Non-small cell lung cancer metastatic
     Dosage: 200 MG, EVERY 3 WEEKS
     Route: 042
     Dates: start: 20240506
  5. SIMVASTATIN [Concomitant]
     Active Substance: SIMVASTATIN
     Indication: Dyslipidaemia
     Dosage: 20 MG, 1X/DAY
     Route: 048
  6. PREGABALIN [Concomitant]
     Active Substance: PREGABALIN
     Indication: Cancer pain
     Dosage: 150 MG, 1X/DAY
     Route: 048
  7. FOLIC ACID [Concomitant]
     Active Substance: FOLIC ACID
     Dosage: 5 MG, 1X/DAY
     Route: 048
     Dates: start: 20240415
  8. COBAMAMIDE [Concomitant]
     Active Substance: COBAMAMIDE
     Dosage: 1000 UG, MONTHLY
     Route: 030
     Dates: start: 20240415
  9. OMEPRAZOLE [Concomitant]
     Active Substance: OMEPRAZOLE
     Dosage: 20 MG, 1X/DAY
     Route: 048
  10. METAMIZOLE [Concomitant]
     Active Substance: METAMIZOLE
     Indication: Cancer pain
     Dosage: 575 MG, 1X/DAY
     Route: 048
  11. MORPHINE [Concomitant]
     Active Substance: MORPHINE
     Indication: Cancer pain
     Dosage: 10 MG, 1X/DAY
     Route: 048
     Dates: start: 20240514
  12. METOCLOPRAMIDE [Concomitant]
     Active Substance: METOCLOPRAMIDE
     Indication: Nausea
     Dosage: 10 MG, 1X/DAY
     Route: 048
     Dates: start: 20240514
  13. DEXAMETHASONE [Concomitant]
     Active Substance: DEXAMETHASONE
     Indication: Asthenia
     Dosage: 2 MG, 1X/DAY
     Route: 048
     Dates: start: 20240612
  14. MEGESTROL [Concomitant]
     Active Substance: MEGESTROL
     Dosage: 160 MG, 1X/DAY
     Route: 048
     Dates: start: 20240514
  15. PREDNISONE [Concomitant]
     Active Substance: PREDNISONE
     Indication: Alanine aminotransferase increased
     Dosage: 30 MG, 1X/DAY
     Route: 048
     Dates: start: 20240920, end: 202410
  16. PREDNISONE [Concomitant]
     Active Substance: PREDNISONE
     Indication: Aspartate aminotransferase increased
     Dosage: 10 MG, 1X/DAY
     Route: 048
     Dates: start: 20240731
  17. ENOXAPARIN [Concomitant]
     Active Substance: ENOXAPARIN
     Indication: Pulmonary embolism
     Dosage: 40 MG, 2X/DAY
     Route: 058
     Dates: start: 20240830
  18. FENTANYL [Concomitant]
     Active Substance: FENTANYL
     Indication: Cancer pain
     Dosage: 12 UG EVERY 72 HOURS
     Route: 062
     Dates: start: 20240917

REACTIONS (1)
  - Hepatotoxicity [Not Recovered/Not Resolved]

NARRATIVE: CASE EVENT DATE: 20241022
